FAERS Safety Report 9734748 (Version 3)
Quarter: 2014Q3

REPORT INFORMATION
  Report Type: Report from Study
  Country: DE (occurrence: DE)
  Receive Date: 20131206
  Receipt Date: 20140905
  Transmission Date: 20150326
  Serious: Yes (Other)
  Sender: FDA-Public Use
  Company Number: DE-ROCHE-1309240

PATIENT
  Age: 84 Year
  Sex: Female

DRUGS (1)
  1. VISMODEGIB [Suspect]
     Active Substance: VISMODEGIB
     Indication: BASAL CELL CARCINOMA
     Route: 065

REACTIONS (6)
  - Muscle spasms [Unknown]
  - Blood creatinine increased [Unknown]
  - Squamous cell carcinoma of skin [Recovered/Resolved]
  - Alopecia [Unknown]
  - Dysgeusia [Unknown]
  - Fatigue [Unknown]
